FAERS Safety Report 16302211 (Version 2)
Quarter: 2019Q2

REPORT INFORMATION
  Report Type: Spontaneous
  Country: AR (occurrence: AR)
  Receive Date: 20190512
  Receipt Date: 20190606
  Transmission Date: 20190711
  Serious: Yes (Death, Other)
  Sender: FDA-Public Use
  Company Number: AR-AMGEN-ARGSP2019075116

PATIENT
  Age: 82 Year
  Sex: Female

DRUGS (1)
  1. ENBREL [Suspect]
     Active Substance: ETANERCEPT
     Indication: RHEUMATOID ARTHRITIS
     Dosage: 50 MG, EVERY 10 DAYS
     Route: 065
     Dates: start: 20060510

REACTIONS (1)
  - Death [Fatal]

NARRATIVE: CASE EVENT DATE: 20190413
